FAERS Safety Report 14703902 (Version 3)
Quarter: 2018Q2

REPORT INFORMATION
  Report Type: Spontaneous
  Country: JP (occurrence: JP)
  Receive Date: 20180402
  Receipt Date: 20180530
  Transmission Date: 20180711
  Serious: Yes (Other)
  Sender: FDA-Public Use
  Company Number: PHJP2018JP006930

PATIENT
  Weight: 2.18 kg

DRUGS (3)
  1. GLIVEC [Suspect]
     Active Substance: IMATINIB MESYLATE
     Indication: FOETAL EXPOSURE DURING PREGNANCY
     Dosage: MATERNAL DOSE: 200 MG, QD
     Route: 064
     Dates: start: 20170808
  2. GLIVEC [Suspect]
     Active Substance: IMATINIB MESYLATE
     Dosage: MATERNAL DOSE: 400 MG, QD
     Route: 064
  3. GLIVEC [Suspect]
     Active Substance: IMATINIB MESYLATE
     Dosage: MATERNAL DOSE: 300 MG, QD
     Route: 064
     Dates: end: 201804

REACTIONS (4)
  - Foetal exposure during pregnancy [Unknown]
  - Premature baby [Unknown]
  - Exposure via breast milk [Unknown]
  - Low birth weight baby [Unknown]
